FAERS Safety Report 9008709 (Version 1)
Quarter: 2013Q1

REPORT INFORMATION
  Report Type: Spontaneous
  Country: US (occurrence: US)
  Receive Date: 20130111
  Receipt Date: 20130111
  Transmission Date: 20140127
  Serious: No
  Sender: FDA-Public Use
  Company Number: US-B.I. PHARMACEUTICALS,INC./RIDGEFIELD-2012-BI-04380BP

PATIENT
  Sex: Female
  Weight: 64 kg

DRUGS (15)
  1. PRADAXA [Suspect]
     Indication: ATRIAL FIBRILLATION
     Dosage: 300 MG
     Route: 048
     Dates: start: 20121027
  2. ALENDRONATE [Concomitant]
     Indication: MINERAL SUPPLEMENTATION
     Dates: start: 2002
  3. AMITRIPTYLINE [Concomitant]
     Dosage: 25 MG
     Route: 048
     Dates: start: 2007
  4. AMIODARONE [Concomitant]
     Indication: ATRIAL FIBRILLATION
     Dosage: 200 MG
     Route: 048
     Dates: start: 2007
  5. CELEBREX [Concomitant]
     Indication: ARTHRITIS
     Dosage: 200 MG
     Route: 048
     Dates: start: 2006
  6. LEVOXYL [Concomitant]
     Indication: HYPOTHYROIDISM
     Dosage: 50 MCG
     Route: 048
     Dates: start: 2008
  7. NIFEDIPINE [Concomitant]
     Indication: POOR PERIPHERAL CIRCULATION
     Dosage: 30 MG
     Route: 048
     Dates: start: 1995
  8. TIMOLOL OPTIC [Concomitant]
     Indication: GLAUCOMA
     Dates: start: 2008
  9. OXYCODONE [Concomitant]
     Indication: PAIN
     Route: 048
     Dates: start: 2011
  10. FUROSEMIDE [Concomitant]
     Indication: FLUID RETENTION
     Route: 048
     Dates: start: 2007
  11. KLORCON [Concomitant]
     Indication: MINERAL SUPPLEMENTATION
     Route: 048
     Dates: start: 2007
  12. PRESER VISION [Concomitant]
     Indication: DRY EYE
     Route: 048
     Dates: start: 201210
  13. MURO 128 EYE DROP [Concomitant]
     Indication: DRY EYE
     Dates: start: 201210
  14. CALCIUM CITRATE [Concomitant]
     Route: 048
     Dates: start: 2007
  15. FISH OIL [Concomitant]
     Indication: CARDIAC DISORDER
     Dosage: 3600 MG
     Route: 048
     Dates: start: 2001

REACTIONS (1)
  - Atrial fibrillation [Recovered/Resolved]
